FAERS Safety Report 22345468 (Version 1)
Quarter: 2023Q2

REPORT INFORMATION
  Report Type: Spontaneous
  Country: US (occurrence: US)
  Receive Date: 20230519
  Receipt Date: 20230519
  Transmission Date: 20230722
  Serious: Yes (Death, Other)
  Sender: FDA-Public Use
  Company Number: US-JNJFOC-20230540013

PATIENT
  Sex: Female

DRUGS (1)
  1. XARELTO [Suspect]
     Active Substance: RIVAROXABAN
     Indication: Product used for unknown indication
     Route: 048

REACTIONS (6)
  - Death [Fatal]
  - Leg amputation [Unknown]
  - Toxicity to various agents [Unknown]
  - Loss of consciousness [Unknown]
  - Injury [Unknown]
  - Malaise [Unknown]
